FAERS Safety Report 12918593 (Version 2)
Quarter: 2017Q1

REPORT INFORMATION
  Report Type: Spontaneous
  Country: US (occurrence: US)
  Receive Date: 20161107
  Receipt Date: 20170104
  Transmission Date: 20170428
  Serious: Yes (Other)
  Sender: FDA-Public Use
  Company Number: US-PFIZER INC-2016508784

PATIENT
  Sex: Male

DRUGS (3)
  1. SUTENT [Suspect]
     Active Substance: SUNITINIB MALATE
     Indication: RENAL CANCER METASTATIC
     Dosage: 50 MG, CYCLIC (4 WEEKS ON AND 2 WEEKS OFF) ( (2 WEEKS ON AND 1 WEEK OFF )
     Dates: start: 200806
  2. SUTENT [Suspect]
     Active Substance: SUNITINIB MALATE
     Dosage: 37.5 MG, CYCLIC (28 DAYS ON/14 DAYS OFF)
  3. SUTENT [Suspect]
     Active Substance: SUNITINIB MALATE
     Dosage: 50 MG, CYCLIC ( (2 WEEKS ON AND 1 WEEK OFF )
     Dates: start: 200806

REACTIONS (2)
  - Pneumatosis intestinalis [Unknown]
  - Osteogenesis imperfecta [Unknown]
